FAERS Safety Report 5334687-6 (Version None)
Quarter: 2007Q2

REPORT INFORMATION
  Report Type: 
  Country: None (occurrence: None)
  Receive Date: 20070521
  Receipt Date: 20070504
  Transmission Date: 20071010
  Serious: Yes (Death, Life-Threatening)
  Sender: FDA-Public Use
  Company Number: DSA_25080_2004

PATIENT
  Age: 35 Year
  Sex: Female

DRUGS (1)
  1. DILTIAZEM [Suspect]
     Dosage: (ORAL)
     Route: 048

REACTIONS (3)
  - CARDIO-RESPIRATORY ARREST [None]
  - COMPLETED SUICIDE [None]
  - INCORRECT DOSE ADMINISTERED [None]
